FAERS Safety Report 7232076-0 (Version None)
Quarter: 2011Q1

REPORT INFORMATION
  Report Type: 
  Country: None (occurrence: None)
  Receive Date: 20110118
  Receipt Date: 20110105
  Transmission Date: 20110831
  Serious: Yes (Life-Threatening)
  Sender: FDA-Public Use
  Company Number: GB-MYLANLABS-2011S1000526

PATIENT
  Age: 34 Year
  Sex: Male

DRUGS (7)
  1. TEMAZEPAM [Suspect]
     Indication: OVERDOSE
     Route: 065
  2. AMLODIPINE [Suspect]
     Indication: OVERDOSE
     Route: 065
  3. PERINDOPRIL [Suspect]
     Indication: OVERDOSE
     Route: 065
  4. DIAZEPAM [Suspect]
     Indication: OVERDOSE
     Route: 065
  5. CITALOPRAM [Suspect]
     Indication: OVERDOSE
     Route: 065
  6. DOXAZOSIN [Suspect]
     Indication: OVERDOSE
     Route: 065
  7. ACETAMINOPHEN AND CODEINE PHOSPHATE [Suspect]
     Indication: OVERDOSE
     Route: 065

REACTIONS (6)
  - HYPOXIA [None]
  - LOSS OF CONSCIOUSNESS [None]
  - METABOLIC ACIDOSIS [None]
  - OVERDOSE [None]
  - TACHYCARDIA [None]
  - HYPOTENSION [None]
